FAERS Safety Report 5729660-X (Version None)
Quarter: 2008Q2

REPORT INFORMATION
  Report Type: 
  Country: None (occurrence: None)
  Receive Date: 20080501
  Receipt Date: 20080421
  Transmission Date: 20081010
  Serious: Yes (Hospitalization, Disabling, Other)
  Sender: FDA-Public Use
  Company Number: POMP-11264

PATIENT
  Sex: Male

DRUGS (4)
  1. MYOZYME [Suspect]
     Indication: GLYCOGEN STORAGE DISEASE TYPE II
     Dosage: INTRAVENOUS
     Route: 042
     Dates: start: 20060101
  2. CORTICOSTEROIDS [Concomitant]
  3. PHENERGAN HCL [Concomitant]
  4. HYDROCORTISONE (SALICYLIC ACID) [Concomitant]

REACTIONS (15)
  - CARDIAC HYPERTROPHY [None]
  - CENTRAL LINE INFECTION [None]
  - CYANOSIS [None]
  - DEAFNESS NEUROSENSORY [None]
  - DISEASE PROGRESSION [None]
  - DYSSTASIA [None]
  - ELECTROMYOGRAM ABNORMAL [None]
  - GENERAL PHYSICAL HEALTH DETERIORATION [None]
  - HYPOTENSION [None]
  - HYPOTONIA [None]
  - INFUSION RELATED REACTION [None]
  - PNEUMONIA [None]
  - RASH [None]
  - RESPIRATORY SYNCYTIAL VIRUS INFECTION [None]
  - THERAPEUTIC RESPONSE DECREASED [None]
